FAERS Safety Report 9209234 (Version 2)
Quarter: 2013Q2

REPORT INFORMATION
  Report Type: Report from Study
  Country: DE (occurrence: DE)
  Receive Date: 20130404
  Receipt Date: 20130506
  Transmission Date: 20140414
  Serious: Yes (Other)
  Sender: FDA-Public Use
  Company Number: DE-UCBSA-082179

PATIENT
  Age: 63 Year
  Sex: Male

DRUGS (8)
  1. VIMPAT [Suspect]
     Indication: PARTIAL SEIZURES
     Route: 048
     Dates: start: 20081212, end: 20081220
  2. LAMOTRIGINE [Concomitant]
     Indication: EPILEPSY
     Route: 048
     Dates: end: 20110712
  3. LEVETIRACETAM [Concomitant]
     Indication: EPILEPSY
     Dosage: FREQUENCY: 6.5 PER DAY
     Route: 048
     Dates: end: 2009
  4. LEVETIRACETAM [Concomitant]
     Indication: EPILEPSY
     Dosage: 3500MG/DAY
  5. TRIMIPRAMIN [Concomitant]
     Indication: DEPRESSION
     Route: 048
     Dates: end: 201103
  6. PENTOXIFYLLIN [Concomitant]
     Indication: TINNITUS
     Route: 048
  7. TROSPIUM CHLORID [Concomitant]
     Indication: BENIGN PROSTATIC HYPERPLASIA
     Route: 048
     Dates: end: 201103
  8. PANTOPRAZOL [Concomitant]
     Indication: GASTROOESOPHAGEAL REFLUX DISEASE
     Route: 048

REACTIONS (2)
  - Ventricular extrasystoles [Recovered/Resolved]
  - Mental disorder [Recovered/Resolved]
